FAERS Safety Report 25973100 (Version 1)
Quarter: 2025Q4

REPORT INFORMATION
  Report Type: Spontaneous
  Country: US (occurrence: US)
  Receive Date: 20251029
  Receipt Date: 20251029
  Transmission Date: 20260118
  Serious: No
  Sender: IPSEN BIOPHARMACEUTICALS, INC.
  Company Number: US-IPSEN Group, Research and Development-2025-26342

PATIENT
  Sex: Female

DRUGS (2)
  1. IQIRVO [Suspect]
     Active Substance: ELAFIBRANOR
     Indication: Systemic lupus erythematosus
     Dosage: UNKNOWN
  2. IQIRVO [Suspect]
     Active Substance: ELAFIBRANOR
     Indication: Off label use

REACTIONS (2)
  - Rash papular [Unknown]
  - Off label use [Unknown]
